FAERS Safety Report 4728502-9 (Version None)
Quarter: 2005Q3

REPORT INFORMATION
  Report Type: 
  Country: None (occurrence: None)
  Receive Date: 20050729
  Receipt Date: 20041214
  Transmission Date: 20060218
  Serious: No
  Sender: FDA-Public Use
  Company Number: US-GLAXOSMITHKLINE-A0537472A

PATIENT
  Age: 80 Year
  Sex: Female

DRUGS (3)
  1. ZANTAC [Suspect]
     Indication: DRUG USE FOR UNKNOWN INDICATION
     Route: 065
  2. ADVIL [Concomitant]
     Indication: ARTHRITIS
     Route: 065
  3. TAGAMET [Concomitant]

REACTIONS (2)
  - DIZZINESS [None]
  - NAUSEA [None]
